FAERS Safety Report 13099975 (Version 1)
Quarter: 2017Q1

REPORT INFORMATION
  Report Type: Spontaneous
  Country: FR (occurrence: FR)
  Receive Date: 20170110
  Receipt Date: 20170110
  Transmission Date: 20170428
  Serious: Yes (Hospitalization)
  Sender: FDA-Public Use
  Company Number: FR-ROCHE-1877064

PATIENT
  Age: 78 Year
  Sex: Female

DRUGS (7)
  1. METFORMIN [Concomitant]
     Active Substance: METFORMIN HYDROCHLORIDE
     Route: 065
  2. XARELTO [Concomitant]
     Active Substance: RIVAROXABAN
  3. CORTANCYL [Concomitant]
     Active Substance: PREDNISONE
  4. BISOCE [Concomitant]
     Active Substance: BISOPROLOL
  5. ROCEPHINE [Suspect]
     Active Substance: CEFTRIAXONE SODIUM
     Indication: BRONCHITIS
     Route: 048
     Dates: start: 20161122, end: 20161129
  6. LIPANTHYL [Concomitant]
     Active Substance: FENOFIBRATE
  7. LASILIX [Concomitant]
     Active Substance: FUROSEMIDE

REACTIONS (2)
  - Leukopenia [Recovered/Resolved]
  - Neutropenia [Recovered/Resolved]

NARRATIVE: CASE EVENT DATE: 20161202
